FAERS Safety Report 8191495-9 (Version None)
Quarter: 2012Q1

REPORT INFORMATION
  Report Type: 
  Country: None (occurrence: None)
  Receive Date: 20120307
  Receipt Date: 20120227
  Transmission Date: 20120608
  Serious: No
  Sender: FDA-Public Use
  Company Number: US-BAYER-2012-020358

PATIENT
  Age: 74 Year
  Sex: Male

DRUGS (1)
  1. ALEVE (CAPLET) [Suspect]
     Indication: ANALGESIC THERAPY
     Dosage: 2 U, ONCE
     Route: 048
     Dates: start: 20120219, end: 20120219

REACTIONS (2)
  - SWELLING FACE [None]
  - LIP SWELLING [None]
